FAERS Safety Report 4530701-6 (Version None)
Quarter: 2004Q4

REPORT INFORMATION
  Report Type: 
  Country: None (occurrence: None)
  Receive Date: 20041217
  Receipt Date: 20040927
  Transmission Date: 20050328
  Serious: Yes (Hospitalization)
  Sender: FDA-Public Use
  Company Number: JP-GLAXOSMITHKLINE-B0346864A

PATIENT
  Age: 71 Year
  Sex: Male
  Weight: 48 kg

DRUGS (13)
  1. PAXIL [Suspect]
     Indication: DEPRESSION
     Dosage: 10MG PER DAY
     Route: 048
     Dates: start: 20040527, end: 20040604
  2. NORVASC [Concomitant]
     Indication: HYPERTENSION
     Dosage: 5MG PER DAY
     Route: 048
     Dates: start: 20040522, end: 20040604
  3. DIOVAN [Concomitant]
     Indication: HYPERTENSION
     Dosage: 1U PER DAY
     Route: 048
     Dates: end: 20040604
  4. DIGOXIN [Concomitant]
     Indication: ANGINA PECTORIS
     Dosage: 1U PER DAY
     Route: 048
     Dates: end: 20040604
  5. THEO-DUR [Concomitant]
     Indication: ASTHMA
     Dosage: 2U PER DAY
     Route: 048
     Dates: start: 20040522, end: 20040604
  6. ONON [Concomitant]
     Indication: ASTHMA
     Dosage: 4U PER DAY
     Route: 048
     Dates: end: 20040604
  7. ALLEGRA [Concomitant]
     Indication: ASTHMA
     Dosage: 2U PER DAY
     Route: 048
     Dates: end: 20040604
  8. PARACLODIN [Concomitant]
     Indication: CEREBRAL INFARCTION
     Dosage: 2U PER DAY
     Route: 048
     Dates: start: 20040522, end: 20040604
  9. SAIBOKU-TO [Concomitant]
     Indication: ASTHMA
     Dosage: 3U PER DAY
     Route: 048
     Dates: start: 20040525, end: 20040602
  10. MIYA BM [Concomitant]
     Indication: GASTROENTERITIS
     Dosage: 3G PER DAY
     Route: 048
     Dates: start: 20040601, end: 20040604
  11. CITICOLINE [Concomitant]
     Indication: CEREBRAL INFARCTION
     Dosage: 500MG PER DAY
     Route: 042
     Dates: start: 20040519, end: 20040601
  12. ATP [Concomitant]
     Indication: CEREBRAL INFARCTION
     Dosage: 1U PER DAY
     Route: 042
     Dates: start: 20040519, end: 20040601
  13. PRIMPERAN [Concomitant]
     Indication: NAUSEA
     Dosage: 1U PER DAY
     Route: 042
     Dates: start: 20040519, end: 20040601

REACTIONS (7)
  - ALANINE AMINOTRANSFERASE INCREASED [None]
  - ASPARTATE AMINOTRANSFERASE INCREASED [None]
  - BILIRUBIN CONJUGATED INCREASED [None]
  - BLOOD BILIRUBIN INCREASED [None]
  - DRUG INTERACTION [None]
  - HEPATIC FUNCTION ABNORMAL [None]
  - JAUNDICE [None]
